FAERS Safety Report 7503200-7 (Version None)
Quarter: 2011Q2

REPORT INFORMATION
  Report Type: 
  Country: None (occurrence: None)
  Receive Date: 20110524
  Receipt Date: 20110524
  Transmission Date: 20111010
  Serious: Yes (Hospitalization)
  Sender: FDA-Public Use
  Company Number: None

PATIENT
  Age: 21 Year
  Sex: Female
  Weight: 81.6475 kg

DRUGS (3)
  1. MAGNESIUM HYDROXIDE AND OMEPRAZOLE AND SODIUM BICARBONATE [Suspect]
     Indication: GASTROOESOPHAGEAL REFLUX DISEASE
     Dosage: 40MG 1XDAY ORAL
     Route: 048
     Dates: start: 20110422, end: 20110511
  2. ZANTAC [Concomitant]
  3. CARAFATE [Concomitant]

REACTIONS (1)
  - OESOPHAGEAL SPASM [None]
